FAERS Safety Report 6883355-8 (Version None)
Quarter: 2010Q3

REPORT INFORMATION
  Report Type: 
  Country: None (occurrence: None)
  Receive Date: 20100727
  Receipt Date: 20071019
  Transmission Date: 20110219
  Serious: No
  Sender: FDA-Public Use
  Company Number: US-PFIZER INC-2007041732

PATIENT
  Sex: Male
  Weight: 81.65 kg

DRUGS (4)
  1. CELEBREX [Suspect]
     Indication: ARTHRITIS
     Dates: end: 20070501
  2. LISINOPRIL [Concomitant]
  3. VIOXX [Concomitant]
  4. VOLTAREN [Concomitant]

REACTIONS (4)
  - CHAPPED LIPS [None]
  - MOUTH ULCERATION [None]
  - PLANTAR FASCIITIS [None]
  - UNEVALUABLE EVENT [None]
